FAERS Safety Report 9112131 (Version 1)
Quarter: 2013Q1

REPORT INFORMATION
  Report Type: Spontaneous
  Country: US (occurrence: US)
  Receive Date: 20130219
  Receipt Date: 20130219
  Transmission Date: 20140127
  Serious: No
  Sender: FDA-Public Use
  Company Number: US-BRISTOL-MYERS SQUIBB COMPANY-16695769

PATIENT
  Age: 56 Year
  Sex: Female
  Weight: 62.58 kg

DRUGS (1)
  1. ABATACEPT SUBQ INJECTION 125MG/ML [Suspect]
     Indication: RHEUMATOID ARTHRITIS
     Dosage: RECENT DOSE 15JUN2012
     Route: 058

REACTIONS (8)
  - Headache [Not Recovered/Not Resolved]
  - Gastroenteritis viral [Unknown]
  - Ear pain [Unknown]
  - Pain [Unknown]
  - Respiratory tract congestion [Unknown]
  - Body temperature increased [Recovered/Resolved]
  - Nausea [Unknown]
  - Feeling abnormal [Unknown]
